FAERS Safety Report 6732741-5 (Version None)
Quarter: 2010Q2

REPORT INFORMATION
  Report Type: 
  Country: None (occurrence: None)
  Receive Date: 20100514
  Receipt Date: 20100503
  Transmission Date: 20101027
  Serious: No
  Sender: FDA-Public Use
  Company Number: 009672

PATIENT
  Age: 61 Year
  Sex: Male

DRUGS (10)
  1. CILOSTAZOL [Suspect]
     Indication: INTERMITTENT CLAUDICATION
     Dosage: 200 MG, DAILY DOSE, ORAL
     Route: 048
     Dates: start: 20091015, end: 20100215
  2. OMEPRAZOLE [Suspect]
     Dosage: 20 MG, DAILY DOSE, ORAL
     Route: 048
  3. ATORVASTATIN CALCIUM [Concomitant]
  4. ASPIRIN [Concomitant]
  5. CARVEDILOL [Concomitant]
  6. HYDROCHLOROTHIAZIDE W LOSARTAN (HYDROCHLOROTHIAZIDE, LOSARTAN) [Concomitant]
  7. MIXTARD HUMAN 70/30 [Concomitant]
  8. OMEGA-3 TRIGLYCERIDES (OMEGA-3 TRIGLYCERIDES) [Concomitant]
  9. CARBOMER (CARBOMER) [Concomitant]
  10. ALPRAZOLAM [Concomitant]

REACTIONS (7)
  - CONDITION AGGRAVATED [None]
  - DECREASED APPETITE [None]
  - DIABETES MELLITUS [None]
  - DIARRHOEA [None]
  - DRUG INTERACTION [None]
  - RENAL IMPAIRMENT [None]
  - WEIGHT DECREASED [None]
